FAERS Safety Report 10747315 (Version 2)
Quarter: 2015Q2

REPORT INFORMATION
  Report Type: Spontaneous
  Country: US (occurrence: None)
  Receive Date: 20150127
  Receipt Date: 20150518
  Transmission Date: 20150821
  Serious: Yes (Other)
  Sender: FDA-Public Use
  Company Number: 2015-10400

PATIENT
  Age: 62 Year
  Sex: Female
  Weight: 68 kg

DRUGS (4)
  1. HYZAAR (HYDROCHLOROTHIAZIDE, LOSARTAN POTASSIUM) [Concomitant]
  2. SYNTHROID [Concomitant]
     Active Substance: LEVOTHYROXINE SODIUM
  3. BABY ASPIRIN (ACETYLSALICYLIC ACID) [Concomitant]
     Active Substance: ASPIRIN
  4. EYLEA [Suspect]
     Active Substance: AFLIBERCEPT
     Indication: NEOVASCULAR AGE-RELATED MACULAR DEGENERATION
     Dosage: MONTHLY ON AVERAGE
     Route: 031
     Dates: start: 20130611

REACTIONS (7)
  - Cerebrovascular accident [None]
  - Anxiety [None]
  - Thyroid function test abnormal [None]
  - Visual acuity reduced [None]
  - Tachycardia [None]
  - Bronchitis [None]
  - Eye haemorrhage [None]

NARRATIVE: CASE EVENT DATE: 201311
